FAERS Safety Report 7968014-2 (Version None)
Quarter: 2011Q4

REPORT INFORMATION
  Report Type: 
  Country: None (occurrence: None)
  Receive Date: 20111209
  Receipt Date: 20111027
  Transmission Date: 20120403
  Serious: Yes (Other)
  Sender: FDA-Public Use
  Company Number: CA-UCBSA-036289

PATIENT
  Age: 48 Year
  Sex: Female
  Weight: 63 kg

DRUGS (9)
  1. NAPROXEN [Concomitant]
     Indication: RHEUMATOID ARTHRITIS
     Route: 048
  2. LYRICA [Concomitant]
     Indication: FIBROMYALGIA
     Route: 048
  3. PRISTIQ [Concomitant]
     Indication: DEPRESSION
     Route: 048
  4. FOLIC ACID [Concomitant]
     Indication: VITAMIN SUPPLEMENTATION
     Route: 048
  5. CIMZIA [Suspect]
     Route: 058
     Dates: start: 20101215, end: 20110112
  6. PANTOPRAZOLE SODIUM [Concomitant]
     Indication: PROPHYLAXIS AGAINST GASTROINTESTINAL ULCER
     Route: 048
  7. CLONIDINE [Concomitant]
     Indication: RAYNAUD'S PHENOMENON
     Route: 048
  8. CIMZIA [Suspect]
     Indication: RHEUMATOID ARTHRITIS
     Route: 058
     Dates: start: 20101215
  9. PLAQUENIL [Concomitant]
     Indication: RHEUMATOID ARTHRITIS
     Route: 048

REACTIONS (3)
  - TOOTH ABSCESS [None]
  - HERPES ZOSTER [None]
  - OROPHARYNGEAL PAIN [None]
